FAERS Safety Report 25523428 (Version 2)
Quarter: 2025Q3

REPORT INFORMATION
  Report Type: Report from Study
  Country: GB (occurrence: GB)
  Receive Date: 20250707
  Receipt Date: 20250718
  Transmission Date: 20251021
  Serious: Yes (Other)
  Sender: NOVARTIS
  Company Number: GB-002147023-NVSC2025GB105984

PATIENT
  Age: 24 Year
  Sex: Female
  Weight: 55.3 kg

DRUGS (4)
  1. MEKINIST [Suspect]
     Active Substance: TRAMETINIB DIMETHYL SULFOXIDE
     Indication: Astrocytoma malignant
     Dosage: 2 MG, QD (TABLET)
     Route: 048
     Dates: start: 20231103, end: 20250626
  2. TAFINLAR [Suspect]
     Active Substance: DABRAFENIB MESYLATE
     Indication: Astrocytoma malignant
     Dosage: 150 MG, BID (TABLET)
     Route: 048
     Dates: start: 20231103, end: 20250626
  3. LACOSAMIDE [Concomitant]
     Active Substance: LACOSAMIDE
     Indication: Seizure
     Dosage: 100 MG, BID (TABLET)
     Route: 048
     Dates: start: 202003, end: 20250626
  4. LEVETIRACETAM [Concomitant]
     Active Substance: LEVETIRACETAM
     Indication: Seizure
     Dosage: 750 MG, BID (TABLET)
     Route: 048
     Dates: start: 202003, end: 20250626

REACTIONS (1)
  - Mitral valve disease [Not Recovered/Not Resolved]

NARRATIVE: CASE EVENT DATE: 20240221
